FAERS Safety Report 17981866 (Version 1)
Quarter: 2020Q3

REPORT INFORMATION
  Report Type: Spontaneous
  Country: US (occurrence: US)
  Receive Date: 20200706
  Receipt Date: 20200706
  Transmission Date: 20201103
  Serious: Yes (Other)
  Sender: FDA-Public Use
  Company Number: US-HIKMA PHARMACEUTICALS USA INC.-US-H14001-20-03142

PATIENT
  Sex: Female

DRUGS (2)
  1. HALOPERIDOL. [Suspect]
     Active Substance: HALOPERIDOL
     Indication: PRODUCT USED FOR UNKNOWN INDICATION
     Route: 030
  2. ATIVAN [Suspect]
     Active Substance: LORAZEPAM
     Indication: PRODUCT USED FOR UNKNOWN INDICATION
     Route: 030

REACTIONS (7)
  - Gait disturbance [Unknown]
  - Paraesthesia [Unknown]
  - Exophthalmos [Unknown]
  - Parosmia [Unknown]
  - Hypoacusis [Unknown]
  - Balance disorder [Unknown]
  - Taste disorder [Unknown]
